FAERS Safety Report 8406119-2 (Version None)
Quarter: 2012Q2

REPORT INFORMATION
  Report Type: 
  Country: None (occurrence: None)
  Receive Date: 20120323
  Receipt Date: 20110208
  Transmission Date: 20120825
  Serious: Yes (Hospitalization)
  Sender: FDA-Public Use
  Company Number: 163-21880-11010882

PATIENT
  Age: 55 Year
  Sex: Male

DRUGS (5)
  1. REVLIMID [Suspect]
     Indication: MULTIPLE MYELOMA
     Dosage: 15 MG, DAILY X 21 DAYS EVERY 28, PO 15 MG, DAILY X 21 DAYS EVERY 28, PO
     Route: 048
     Dates: start: 20090227, end: 20101230
  2. REVLIMID [Suspect]
     Indication: MULTIPLE MYELOMA
     Dosage: 15 MG, DAILY X 21 DAYS EVERY 28, PO 15 MG, DAILY X 21 DAYS EVERY 28, PO
     Route: 048
     Dates: start: 20110103
  3. ZOMETA [Concomitant]
  4. COMADIN (CLOTRIMAZOLE) (UNKNOWN) [Concomitant]
  5. DECADRON [Concomitant]

REACTIONS (1)
  - PNEUMONIA [None]
